FAERS Safety Report 6429643-0 (Version None)
Quarter: 2009Q4

REPORT INFORMATION
  Report Type: 
  Country: None (occurrence: None)
  Receive Date: 20091106
  Receipt Date: 20091026
  Transmission Date: 20100525
  Serious: Yes (Other)
  Sender: FDA-Public Use
  Company Number: US-JNJCH-2009028418

PATIENT
  Age: 72 Year
  Sex: Male
  Weight: 81.6 kg

DRUGS (2)
  1. ROGAINE [Suspect]
     Indication: ALOPECIA
     Route: 061
     Dates: start: 20090926, end: 20091012
  2. BENICAR [Concomitant]
     Indication: DRUG USE FOR UNKNOWN INDICATION
     Dosage: TEXT:UNSPECIFIED
     Route: 065

REACTIONS (6)
  - APPLICATION SITE DISCOMFORT [None]
  - APPLICATION SITE DRYNESS [None]
  - APPLICATION SITE ERYTHEMA [None]
  - APPLICATION SITE EXFOLIATION [None]
  - APPLICATION SITE REACTION [None]
  - APPLICATION SITE VESICLES [None]
